FAERS Safety Report 8719071 (Version 2)
Quarter: 2012Q4

REPORT INFORMATION
  Report Type: 
  Country: US (occurrence: US)
  Receive Date: 20120813
  Receipt Date: 20120904
  Transmission Date: 20130627
  Serious: No
  Sender: FDA-Public Use
  Company Number: US-AMGEN-USASP2012049945

PATIENT
  Age: 43 Year
  Sex: Female

DRUGS (2)
  1. ENBREL [Suspect]
     Dosage: UNK UNK, qwk
     Dates: start: 20060701, end: 201102
  2. HUMIRA [Concomitant]
     Dosage: UNK

REACTIONS (1)
  - Pregnancy [Recovered/Resolved]
